FAERS Safety Report 18699584 (Version 4)
Quarter: 2021Q2

REPORT INFORMATION
  Report Type: Spontaneous
  Country: US (occurrence: US)
  Receive Date: 20210104
  Receipt Date: 20210514
  Transmission Date: 20210717
  Serious: Yes (Hospitalization)
  Sender: FDA-Public Use
  Company Number: US-PFIZER INC-2020519011

PATIENT
  Age: 60 Year
  Sex: Female
  Weight: 63.49 kg

DRUGS (1)
  1. BOSULIF [Suspect]
     Active Substance: BOSUTINIB MONOHYDRATE
     Indication: PHILADELPHIA POSITIVE CHRONIC MYELOID LEUKAEMIA
     Dosage: 400 MG, DAILY (TAKE 1 TABLET, ORAL)
     Route: 048
     Dates: start: 20201201

REACTIONS (11)
  - Neoplasm progression [Not Recovered/Not Resolved]
  - Product dose omission issue [Unknown]
  - Nausea [Unknown]
  - Pneumonia [Unknown]
  - Hypoaesthesia [Unknown]
  - Vomiting [Unknown]
  - Pyrexia [Unknown]
  - Dehydration [Unknown]
  - Diarrhoea [Unknown]
  - Gastroenteritis Escherichia coli [Unknown]
  - Dry mouth [Unknown]
